FAERS Safety Report 19568718 (Version 1)
Quarter: 2021Q3

REPORT INFORMATION
  Report Type: Spontaneous
  Country: GB (occurrence: GB)
  Receive Date: 20210715
  Receipt Date: 20210715
  Transmission Date: 20211014
  Serious: Yes (Hospitalization)
  Sender: FDA-Public Use
  Company Number: GB-PFIZER INC-2021821440

PATIENT
  Age: 73 Year
  Sex: Male

DRUGS (1)
  1. RITUXIMAB. [Suspect]
     Active Substance: RITUXIMAB
     Indication: CHRONIC LYMPHOCYTIC LEUKAEMIA
     Dosage: 900 (UNKNOWN UNIT)
     Route: 042
     Dates: start: 20210625

REACTIONS (1)
  - Henoch-Schonlein purpura [Recovering/Resolving]

NARRATIVE: CASE EVENT DATE: 20210625
